FAERS Safety Report 6190380-1 (Version None)
Quarter: 2009Q2

REPORT INFORMATION
  Report Type: 
  Country: None (occurrence: None)
  Receive Date: 20090514
  Receipt Date: 20090507
  Transmission Date: 20091009
  Serious: Yes (Hospitalization)
  Sender: FDA-Public Use
  Company Number: B0566003A

PATIENT
  Sex: Male
  Weight: 76.2 kg

DRUGS (4)
  1. ENGERIX-B [Suspect]
     Indication: PROPHYLAXIS
     Dosage: 20MCG SINGLE DOSE
     Route: 065
     Dates: start: 20090126, end: 20090126
  2. BECLOMETASONE [Suspect]
     Indication: ASTHMA
     Dosage: 2PUFF TWICE PER DAY
     Route: 055
  3. SALBUTAMOL [Suspect]
     Indication: ASTHMA
     Dosage: 2PUFF AS REQUIRED
     Route: 055
  4. ENGERIX-B [Concomitant]
     Dosage: 20MCG SINGLE DOSE
     Route: 030
     Dates: start: 20090119, end: 20090119

REACTIONS (2)
  - CEREBRAL INFARCTION [None]
  - CEREBROVASCULAR ACCIDENT [None]
